FAERS Safety Report 26041218 (Version 2)
Quarter: 2025Q4

REPORT INFORMATION
  Report Type: Spontaneous
  Country: EU (occurrence: EU)
  Receive Date: 20251113
  Receipt Date: 20251119
  Transmission Date: 20260117
  Serious: Yes (Other)
  Sender: PFIZER
  Company Number: None

PATIENT
  Age: 53 Year
  Sex: Female
  Weight: 60 kg

DRUGS (6)
  1. CLINDAMYCIN HYDROCHLORIDE [Suspect]
     Active Substance: CLINDAMYCIN HYDROCHLORIDE
     Indication: Ovarian abscess
     Dosage: 300 MG
     Route: 048
     Dates: start: 20250808
  2. CIPROFLOXACIN [Suspect]
     Active Substance: CIPROFLOXACIN
     Indication: Ovarian abscess
     Dosage: 500 MG
     Route: 048
     Dates: start: 20250808
  3. METRONIDAZOLE [Suspect]
     Active Substance: METRONIDAZOLE
     Indication: Ovarian abscess
     Dosage: 500 MG, 2X/DAY (EVERY 12 HOURS)
     Dates: start: 20250806
  4. MEROPENEM [Suspect]
     Active Substance: MEROPENEM
     Indication: Ovarian abscess
     Dosage: 1000 MG
     Dates: start: 20250809
  5. CEFTRIAXONE [Suspect]
     Active Substance: CEFTRIAXONE
     Indication: Ovarian abscess
     Dosage: UNK
     Dates: start: 20250806
  6. DOXYCYCLINE [Suspect]
     Active Substance: DOXYCYCLINE
     Indication: Ovarian abscess
     Dosage: UNK
     Dates: start: 20250806

REACTIONS (7)
  - Tendon discomfort [Not Recovered/Not Resolved]
  - Eye discharge [Recovered/Resolved]
  - Hyposmia [Not Recovered/Not Resolved]
  - Hypogeusia [Not Recovered/Not Resolved]
  - Coordination abnormal [Not Recovered/Not Resolved]
  - Disturbance in attention [Recovering/Resolving]
  - Restlessness [Recovered/Resolved]

NARRATIVE: CASE EVENT DATE: 20250809
